FAERS Safety Report 4875321-9 (Version None)
Quarter: 2006Q1

REPORT INFORMATION
  Report Type: 
  Country: None (occurrence: None)
  Receive Date: 20060109
  Receipt Date: 20051005
  Transmission Date: 20060701
  Serious: Yes (Hospitalization)
  Sender: FDA-Public Use
  Company Number: US-MERCK-0510USA04505

PATIENT
  Age: 87 Year
  Sex: Female
  Weight: 59 kg

DRUGS (4)
  1. VIOXX [Suspect]
     Indication: ARTHRITIS
     Route: 048
     Dates: start: 20030801, end: 20040501
  2. CELEBREX [Concomitant]
     Route: 065
  3. ASPIRIN [Concomitant]
     Route: 065
  4. WARFARIN [Concomitant]
     Route: 065

REACTIONS (16)
  - COORDINATION ABNORMAL [None]
  - DEMENTIA [None]
  - DEPRESSION [None]
  - DIVERTICULUM [None]
  - GASTROINTESTINAL HAEMORRHAGE [None]
  - GASTROOESOPHAGEAL REFLUX DISEASE [None]
  - HYPERLIPIDAEMIA [None]
  - LACUNAR INFARCTION [None]
  - MALNUTRITION [None]
  - METABOLIC ENCEPHALOPATHY [None]
  - PERIPHERAL VASCULAR DISORDER [None]
  - RASH [None]
  - RENAL FAILURE CHRONIC [None]
  - SYNCOPE [None]
  - URINARY TRACT INFECTION [None]
  - VENTRICULAR DYSFUNCTION [None]
